FAERS Safety Report 8241378-0 (Version None)
Quarter: 2012Q1

REPORT INFORMATION
  Report Type: 
  Country: None (occurrence: None)
  Receive Date: 20120328
  Receipt Date: 20120323
  Transmission Date: 20120608
  Serious: Yes (Other)
  Sender: FDA-Public Use
  Company Number: US-EISAI INC-E7389-02174-CLI-US

PATIENT
  Sex: Female
  Weight: 60 kg

DRUGS (7)
  1. VITAMIN B COMPLEX CAP [Concomitant]
     Route: 048
     Dates: start: 20111015
  2. EPIRUBICIN HYDROCHLORIDE [Suspect]
     Route: 041
     Dates: start: 20111021, end: 20111021
  3. EPIRUBICIN HYDROCHLORIDE [Suspect]
     Route: 041
     Dates: start: 20111104, end: 20111104
  4. OMEGA FISH OIL [Concomitant]
     Route: 048
     Dates: start: 20111015
  5. MULTI-VITAMIN [Concomitant]
     Route: 048
     Dates: start: 20111015
  6. CRANBERRY [Concomitant]
     Route: 048
     Dates: start: 20111015
  7. SUPER GREEN [Concomitant]
     Route: 048
     Dates: start: 20111015

REACTIONS (1)
  - SUPRAVENTRICULAR TACHYCARDIA [None]
